FAERS Safety Report 7194387-7 (Version None)
Quarter: 2010Q4

REPORT INFORMATION
  Report Type: 
  Country: None (occurrence: None)
  Receive Date: 20101223
  Receipt Date: 20101122
  Transmission Date: 20110411
  Serious: Yes (Death, Hospitalization)
  Sender: FDA-Public Use
  Company Number: GB-AMGEN-02080313

PATIENT

DRUGS (6)
  1. ETANERCEPT [Suspect]
     Indication: RHEUMATOID ARTHRITIS
     Dosage: UNK, 2 TIMES/WK
     Dates: start: 20010615, end: 20020701
  2. ETANERCEPT [Suspect]
     Dosage: UNK
     Dates: start: 20020805, end: 20020805
  3. ESTROGEN NOS [Concomitant]
  4. OMEPRAZOLE [Concomitant]
  5. BENDROFLUMETHIAZIDE [Concomitant]
  6. RISEDRONIC ACID [Concomitant]

REACTIONS (4)
  - CARDIAC ARREST [None]
  - ENCEPHALITIS [None]
  - OTITIS EXTERNA [None]
  - STREPTOCOCCAL SEPSIS [None]
